FAERS Safety Report 24075634 (Version 2)
Quarter: 2024Q3

REPORT INFORMATION
  Report Type: Spontaneous
  Country: CL (occurrence: CL)
  Receive Date: 20240710
  Receipt Date: 20240816
  Transmission Date: 20241017
  Serious: No
  Sender: PFIZER
  Company Number: CL-PFIZER INC-PV202400089277

PATIENT
  Age: 14 Year
  Sex: Male

DRUGS (1)
  1. GENOTROPIN [Suspect]
     Active Substance: SOMATROPIN
     Dosage: UNK

REACTIONS (2)
  - Drug dose omission by device [Unknown]
  - Device breakage [Unknown]
